FAERS Safety Report 9524389 (Version 1)
Quarter: 2013Q1

REPORT INFORMATION
  Report Type: Spontaneous
  Country: US (occurrence: None)
  Receive Date: 20130305
  Receipt Date: 20130305
  Transmission Date: 20140127
  Serious: Yes (Hospitalization)
  Sender: FDA-Public Use
  Company Number: 163-21880-12033462

PATIENT
  Sex: Male

DRUGS (1)
  1. REVLIMID [Suspect]
     Indication: B-CELL LYMPHOMA
     Dosage: 25 MG, 1 IN 1 D, PO
     Route: 048
     Dates: start: 201202

REACTIONS (4)
  - Hypersensitivity [None]
  - Headache [None]
  - Swelling [None]
  - Swelling face [None]
